FAERS Safety Report 21468967 (Version 2)
Quarter: 2022Q4

REPORT INFORMATION
  Report Type: Report from Study
  Country: US (occurrence: US)
  Receive Date: 20221018
  Receipt Date: 20221026
  Transmission Date: 20230113
  Serious: Yes (Death, Hospitalization, Other)
  Sender: FDA-Public Use
  Company Number: US-BoehringerIngelheim-2022-BI-150244

PATIENT
  Age: 75 Year
  Sex: Male
  Weight: 104.3 kg

DRUGS (6)
  1. OFEV [Suspect]
     Active Substance: NINTEDANIB
     Indication: Pulmonary hypertension
     Route: 048
     Dates: start: 20150708, end: 2022
  2. OFEV [Suspect]
     Active Substance: NINTEDANIB
     Indication: Idiopathic pulmonary fibrosis
  3. TYVASO [Suspect]
     Active Substance: TREPROSTINIL
     Indication: Pulmonary arterial hypertension
     Dosage: INHALATION
     Dates: start: 20211213, end: 20220302
  4. TYVASO [Suspect]
     Active Substance: TREPROSTINIL
     Dosage: 3 PUFFS
     Dates: start: 20220119
  5. TYVASO [Suspect]
     Active Substance: TREPROSTINIL
     Dosage: 18-72 ?G, INHALATION
  6. TYVASO [Suspect]
     Active Substance: TREPROSTINIL
     Dosage: INHALATION

REACTIONS (10)
  - Death [Fatal]
  - Dyspnoea [Unknown]
  - Chronic obstructive pulmonary disease [Unknown]
  - Hypotension [Unknown]
  - Balance disorder [Unknown]
  - Idiopathic pulmonary fibrosis [Unknown]
  - Blood glucose decreased [Unknown]
  - Dizziness [Unknown]
  - Malaise [Unknown]
  - Intentional product use issue [Unknown]

NARRATIVE: CASE EVENT DATE: 20210101
